FAERS Safety Report 6086005-6 (Version None)
Quarter: 2009Q1

REPORT INFORMATION
  Report Type: 
  Country: None (occurrence: None)
  Receive Date: 20090220
  Receipt Date: 20090217
  Transmission Date: 20090719
  Serious: Yes (Hospitalization)
  Sender: FDA-Public Use
  Company Number: DE-BAYER-200912946GPV

PATIENT
  Age: 65 Year
  Sex: Male
  Weight: 80 kg

DRUGS (1)
  1. NEBIDO [Suspect]
     Indication: HYPOGONADISM MALE
     Route: 030
     Dates: start: 20080101

REACTIONS (1)
  - EPILEPSY [None]
